FAERS Safety Report 7285471-8 (Version None)
Quarter: 2011Q1

REPORT INFORMATION
  Report Type: 
  Country: None (occurrence: None)
  Receive Date: 20110210
  Receipt Date: 20110131
  Transmission Date: 20110831
  Serious: Yes (Other)
  Sender: FDA-Public Use
  Company Number: FR-NOVOPROD-322305

PATIENT
  Age: 78 Year
  Sex: Male
  Weight: 90 kg

DRUGS (10)
  1. ZYLORIC [Concomitant]
     Route: 048
  2. VICTOZA [Suspect]
     Dosage: 1.2 MG, QD
     Route: 058
     Dates: start: 20101201
  3. NOVONORM [Concomitant]
     Dosage: 1.5 MG, QD
     Route: 048
  4. ASPIRIN [Concomitant]
     Route: 048
  5. ELISOR [Concomitant]
     Route: 048
  6. BISOPROLOL FUMARATE [Concomitant]
     Route: 048
  7. VICTOZA [Suspect]
     Indication: TYPE 2 DIABETES MELLITUS
     Dosage: 0.6 MG, QD
     Route: 058
     Dates: start: 20101125
  8. AMLOR [Concomitant]
     Route: 048
  9. LASIX [Concomitant]
     Route: 048
  10. APROVEL [Concomitant]
     Route: 048

REACTIONS (3)
  - RENAL FAILURE [None]
  - GASTROINTESTINAL DISORDER [None]
  - DEHYDRATION [None]
